FAERS Safety Report 5932624-4 (Version None)
Quarter: 2008Q4

REPORT INFORMATION
  Report Type: 
  Country: None (occurrence: None)
  Receive Date: 20081028
  Receipt Date: 20081014
  Transmission Date: 20090506
  Serious: No
  Sender: FDA-Public Use
  Company Number: US-BAYER-200829140NA

PATIENT
  Age: 44 Year
  Sex: Female
  Weight: 75 kg

DRUGS (1)
  1. MIRENA [Suspect]
     Indication: CONTRACEPTION
     Route: 015
     Dates: start: 20080709

REACTIONS (5)
  - AMENORRHOEA [None]
  - HYPOAESTHESIA [None]
  - IUCD COMPLICATION [None]
  - LIBIDO DECREASED [None]
  - POST PROCEDURAL HAEMORRHAGE [None]
